FAERS Safety Report 4551204-9 (Version None)
Quarter: 2005Q1

REPORT INFORMATION
  Report Type: 
  Country: None (occurrence: None)
  Receive Date: 20050106
  Receipt Date: 20041224
  Transmission Date: 20050727
  Serious: Yes (Death)
  Sender: FDA-Public Use
  Company Number: 2004JP001503

PATIENT
  Age: 5 Week
  Sex: Male

DRUGS (1)
  1. PROGRAF [Suspect]
     Indication: LIVER TRANSPLANT
     Dates: start: 20030130, end: 20030209

REACTIONS (12)
  - CARDIOVASCULAR DISORDER [None]
  - COAGULATION DISORDER NEONATAL [None]
  - COMPLICATIONS OF TRANSPLANTED LIVER [None]
  - DRUG RESISTANCE [None]
  - HEPATIC HAEMORRHAGE [None]
  - HEPATIC NECROSIS [None]
  - NEONATAL DISORDER [None]
  - PLATELET COUNT DECREASED [None]
  - POST PROCEDURAL COMPLICATION [None]
  - RED BLOOD CELL ABNORMALITY [None]
  - THROMBOTIC MICROANGIOPATHY [None]
  - VENOOCCLUSIVE LIVER DISEASE [None]
